FAERS Safety Report 18194280 (Version 1)
Quarter: 2020Q3

REPORT INFORMATION
  Report Type: Report from Study
  Country: US (occurrence: US)
  Receive Date: 20200825
  Receipt Date: 20200825
  Transmission Date: 20201103
  Serious: Yes (Hospitalization)
  Sender: FDA-Public Use
  Company Number: US-ACTELION-A-NJ2015-119766

PATIENT
  Age: 64 Year
  Sex: Female
  Weight: 72.56 kg

DRUGS (2)
  1. COUMADIN [Concomitant]
     Active Substance: WARFARIN SODIUM
  2. TRACLEER [Suspect]
     Active Substance: BOSENTAN
     Indication: PULMONARY ARTERIAL HYPERTENSION
     Dosage: UNK
     Route: 048

REACTIONS (8)
  - Cellulitis [Unknown]
  - Nasal congestion [Unknown]
  - Sinusitis [Recovering/Resolving]
  - Dyspnoea exertional [Unknown]
  - Oxygen saturation decreased [Unknown]
  - Cough [Unknown]
  - Secretion discharge [Unknown]
  - Nasopharyngitis [Unknown]

NARRATIVE: CASE EVENT DATE: 20150703
